FAERS Safety Report 23635551 (Version 1)
Quarter: 2024Q1

REPORT INFORMATION
  Report Type: Spontaneous
  Country: US (occurrence: US)
  Receive Date: 20240315
  Receipt Date: 20240315
  Transmission Date: 20240410
  Serious: Yes (Other)
  Sender: FDA-Public Use
  Company Number: US-AUROBINDO-AUR-APL-2024-011943

PATIENT
  Age: 50 Year
  Sex: Male

DRUGS (2)
  1. DOFETILIDE [Suspect]
     Active Substance: DOFETILIDE
     Indication: Atrial fibrillation
     Dosage: 250 MICROGRAM, TWO TIMES A DAY (FOR 5 YEARS)
     Route: 048
  2. DOFETILIDE [Suspect]
     Active Substance: DOFETILIDE
     Dosage: 500 MICROGRAM, TWO TIMES A DAY
     Route: 048

REACTIONS (2)
  - Electrocardiogram QT prolonged [Recovering/Resolving]
  - Accidental overdose [Unknown]
